FAERS Safety Report 5060505-X (Version None)
Quarter: 2006Q3

REPORT INFORMATION
  Report Type: 
  Country: None (occurrence: None)
  Receive Date: 20060721
  Receipt Date: 20060721
  Transmission Date: 20061208
  Serious: Yes (Hospitalization)
  Sender: FDA-Public Use
  Company Number: None

PATIENT
  Age: 48 Year
  Sex: Female
  Weight: 61.2356 kg

DRUGS (3)
  1. SCOPOLAMINE [Suspect]
     Indication: SMOKING CESSATION THERAPY
     Dosage: X1  IM
     Route: 030
     Dates: start: 20060717, end: 20060717
  2. HYDROXYZINE [Suspect]
     Dosage: X1 IM
     Route: 030
     Dates: start: 20060617, end: 20060617
  3. CHLORPROMAZINE HCL [Suspect]
     Dosage: X1 IM
     Route: 030
     Dates: start: 20060617, end: 20060617

REACTIONS (5)
  - AGITATION [None]
  - AMNESIA [None]
  - APHASIA [None]
  - HALLUCINATION [None]
  - SKIN DISCOLOURATION [None]
